FAERS Safety Report 16172582 (Version 4)
Quarter: 2019Q2

REPORT INFORMATION
  Report Type: Spontaneous
  Country: ES (occurrence: ES)
  Receive Date: 20190409
  Receipt Date: 20190527
  Transmission Date: 20190711
  Serious: Yes (Hospitalization, Other)
  Sender: FDA-Public Use
  Company Number: ES-SA-2019SA094862

PATIENT
  Age: 35 Year
  Sex: Female

DRUGS (3)
  1. SERTRALINE [Concomitant]
     Active Substance: SERTRALINE HYDROCHLORIDE
     Dosage: QD
     Route: 048
     Dates: start: 20190222
  2. LEMTRADA [Suspect]
     Active Substance: ALEMTUZUMAB
     Route: 065
  3. BACLOFEN. [Concomitant]
     Active Substance: BACLOFEN
     Dosage: QD
     Route: 048
     Dates: start: 2016

REACTIONS (19)
  - Thrombosis [Unknown]
  - Eosinophil count abnormal [Unknown]
  - Contusion [Unknown]
  - Platelet count abnormal [Unknown]
  - White blood cell count abnormal [Unknown]
  - Immune thrombocytopenic purpura [Not Recovered/Not Resolved]
  - Petechiae [Unknown]
  - Red blood cell count abnormal [Unknown]
  - Neutrophil count abnormal [Unknown]
  - Monocyte count abnormal [Unknown]
  - Mean cell volume abnormal [Unknown]
  - Blood urine present [Unknown]
  - Basophil count abnormal [Unknown]
  - Haematocrit abnormal [Unknown]
  - Haemoptysis [Unknown]
  - Haematochezia [Unknown]
  - Haemoglobin abnormal [Unknown]
  - Mean cell haemoglobin concentration abnormal [Unknown]
  - Mean cell haemoglobin [Unknown]

NARRATIVE: CASE EVENT DATE: 20190330
